FAERS Safety Report 7974039-3 (Version None)
Quarter: 2011Q4

REPORT INFORMATION
  Report Type: 
  Country: None (occurrence: None)
  Receive Date: 20111213
  Receipt Date: 20111202
  Transmission Date: 20120403
  Serious: Yes (Other)
  Sender: FDA-Public Use
  Company Number: FR-GLAXOSMITHKLINE-B0766691A

PATIENT
  Sex: Female

DRUGS (13)
  1. SOLU-MEDROL [Concomitant]
     Dosage: 20MG THREE TIMES PER DAY
     Route: 042
     Dates: start: 20111022, end: 20111024
  2. ZOFRAN [Suspect]
     Indication: PROPHYLAXIS
     Route: 065
     Dates: start: 20111020, end: 20111026
  3. VALACYCLOVIR HYDROCHLORIDE [Concomitant]
     Dosage: 500MG SIX TIMES PER DAY
     Route: 048
     Dates: start: 20111018, end: 20111025
  4. PANTOPRAZOLE [Concomitant]
     Dosage: 20MG PER DAY
     Route: 048
     Dates: start: 20111018
  5. GABAPENTIN [Concomitant]
     Dosage: 300MG THREE TIMES PER DAY
     Route: 048
     Dates: start: 20111018
  6. MESNA [Concomitant]
     Dosage: 182MG FOUR TIMES PER DAY
     Route: 042
     Dates: start: 20111020, end: 20111025
  7. POLARAMINE [Concomitant]
     Dosage: 10MG PER DAY
     Route: 042
     Dates: start: 20111022, end: 20111023
  8. CYCLOPHOSPHAMIDE [Concomitant]
     Dosage: 547MG CYCLIC
     Route: 042
     Dates: start: 20111020, end: 20111023
  9. DELURSAN [Concomitant]
     Dosage: 1G PER DAY
     Route: 065
     Dates: start: 20111020
  10. THYMOGLOBULIN [Suspect]
     Indication: PROPHYLAXIS AGAINST TRANSPLANT REJECTION
     Dosage: 275MG CYCLIC
     Route: 042
     Dates: start: 20111022
  11. FLUDARA [Concomitant]
     Dosage: 55MG CYCLIC
     Route: 042
     Dates: start: 20111020, end: 20111023
  12. OXYCODONE HCL [Concomitant]
     Dosage: 5MG SIX TIMES PER DAY
     Route: 048
     Dates: start: 20111018
  13. AMITRIPTYLINE HCL [Concomitant]
     Dosage: 25MG PER DAY
     Route: 048
     Dates: start: 20111018

REACTIONS (2)
  - HEPATOCELLULAR INJURY [None]
  - PROTHROMBIN LEVEL DECREASED [None]
